FAERS Safety Report 6788145-2 (Version None)
Quarter: 2010Q2

REPORT INFORMATION
  Report Type: 
  Country: None (occurrence: None)
  Receive Date: 20100623
  Receipt Date: 20080122
  Transmission Date: 20101027
  Serious: No
  Sender: FDA-Public Use
  Company Number: US-PFIZER INC-2008006743

PATIENT
  Age: 80 Year
  Sex: Male
  Weight: 58.97 kg

DRUGS (4)
  1. XALATAN [Suspect]
     Indication: GLAUCOMA
     Dates: start: 20061001
  2. COSOPT [Concomitant]
  3. CALCIUM CARBONATE [Concomitant]
  4. CENTRUM SILVER [Concomitant]

REACTIONS (2)
  - COELIAC DISEASE [None]
  - GASTROINTESTINAL HYPERMOTILITY [None]
